FAERS Safety Report 14315339 (Version 3)
Quarter: 2018Q3

REPORT INFORMATION
  Report Type: Spontaneous
  Country: GB (occurrence: GB)
  Receive Date: 20171221
  Receipt Date: 20180706
  Transmission Date: 20181010
  Serious: Yes (Life-Threatening, Disabling)
  Sender: FDA-Public Use
  Company Number: GB-PFIZER INC-2017537638

PATIENT
  Age: 72 Year
  Sex: Female
  Weight: 73 kg

DRUGS (10)
  1. METFORMIN [Concomitant]
     Active Substance: METFORMIN HYDROCHLORIDE
     Dosage: UNK
  2. INVOKANA [Interacting]
     Active Substance: CANAGLIFLOZIN
     Indication: BLOOD GLUCOSE FLUCTUATION
     Dosage: 100 MG, 1X/DAY
     Route: 048
     Dates: start: 20170617
  3. INVOKANA [Interacting]
     Active Substance: CANAGLIFLOZIN
     Dosage: 300 MG, 1X/DAY
     Route: 048
     Dates: end: 20170804
  4. GLICLAZIDE [Concomitant]
     Active Substance: GLICLAZIDE
     Dosage: UNK
  5. NAPROSYN [Concomitant]
     Active Substance: NAPROXEN
     Dosage: UNK
  6. TOLTERODINE TARTRATE. [Concomitant]
     Active Substance: TOLTERODINE TARTRATE
     Dosage: UNK
  7. FULTIUM D3 [Concomitant]
     Active Substance: CHOLECALCIFEROL
     Dosage: UNK
  8. LISINOPRIL. [Concomitant]
     Active Substance: LISINOPRIL
     Dosage: UNK
  9. EXENATIDE. [Concomitant]
     Active Substance: EXENATIDE
     Dosage: UNK
  10. LYRICA [Suspect]
     Active Substance: PREGABALIN
     Indication: NEURALGIA
     Dosage: 2 DF, 1X/DAY
     Route: 048
     Dates: start: 201705, end: 20170918

REACTIONS (10)
  - Intestinal obstruction [Recovered/Resolved with Sequelae]
  - Discomfort [Unknown]
  - Drug interaction [Unknown]
  - Constipation [Recovered/Resolved with Sequelae]
  - Candida infection [Unknown]
  - Ileus paralytic [Recovered/Resolved]
  - Hypertonic bladder [Unknown]
  - Vomiting projectile [Recovered/Resolved with Sequelae]
  - Back pain [Recovered/Resolved with Sequelae]
  - Abdominal distension [Recovered/Resolved with Sequelae]

NARRATIVE: CASE EVENT DATE: 20170620
